FAERS Safety Report 5295231-5 (Version None)
Quarter: 2007Q1

REPORT INFORMATION
  Report Type: 
  Country: None (occurrence: None)
  Receive Date: 20070201
  Receipt Date: 20061018
  Transmission Date: 20070707
  Serious: No
  Sender: FDA-Public Use
  Company Number: 2006PV023503

PATIENT
  Age: 65 Year
  Sex: Female
  Weight: 72.1219 kg

DRUGS (4)
  1. BYETTA [Suspect]
     Indication: DIABETES MELLITUS NON-INSULIN-DEPENDENT
     Dosage: 5 MCG; BID; SC
     Route: 058
     Dates: start: 20060401
  2. METFORMIN HCL [Suspect]
     Indication: DRUG USE FOR UNKNOWN INDICATION
     Dosage: 1500 MG; QD; PO
     Route: 048
     Dates: start: 20060401, end: 20061001
  3. GLUCOTROL XL [Concomitant]
  4. METFORMIN HCL [Concomitant]

REACTIONS (10)
  - BLOOD GLUCOSE DECREASED [None]
  - BLOOD GLUCOSE INCREASED [None]
  - DECREASED APPETITE [None]
  - DYSPEPSIA [None]
  - GASTROOESOPHAGEAL REFLUX DISEASE [None]
  - HEADACHE [None]
  - HYPERHIDROSIS [None]
  - THROAT IRRITATION [None]
  - TREMOR [None]
  - WEIGHT DECREASED [None]
